FAERS Safety Report 5704532-5 (Version None)
Quarter: 2008Q2

REPORT INFORMATION
  Report Type: 
  Country: None (occurrence: None)
  Receive Date: 20080414
  Receipt Date: 20080403
  Transmission Date: 20081010
  Serious: Yes (Other)
  Sender: FDA-Public Use
  Company Number: BR-ROCHE-557265

PATIENT
  Age: 56 Year
  Sex: Female
  Weight: 68 kg

DRUGS (4)
  1. RIVOTRIL [Suspect]
     Route: 048
  2. XENICAL [Suspect]
     Indication: GASTROINTESTINAL MUCOSAL DISORDER
     Route: 065
     Dates: start: 20050101
  3. TAMOXIFEN CITRATE [Concomitant]
     Indication: BREAST CANCER
     Dates: start: 20050101
  4. TOPAMAX [Concomitant]

REACTIONS (6)
  - ABDOMINAL DISCOMFORT [None]
  - BREAST CANCER [None]
  - CONSTIPATION [None]
  - GASTROINTESTINAL MUCOSAL DISORDER [None]
  - SWELLING [None]
  - VASCULAR CALCIFICATION [None]
